FAERS Safety Report 11547343 (Version 1)
Quarter: 2015Q3

REPORT INFORMATION
  Report Type: Spontaneous
  Country: GR (occurrence: GR)
  Receive Date: 20150924
  Receipt Date: 20150924
  Transmission Date: 20151125
  Serious: Yes (Other)
  Sender: FDA-Public Use
  Company Number: GR-AMGEN-GRCSP2015097565

PATIENT
  Age: 78 Year
  Sex: Female

DRUGS (9)
  1. REMERON [Concomitant]
     Active Substance: MIRTAZAPINE
  2. CALCIORAL D3 [Concomitant]
  3. EXEMESTANE. [Concomitant]
     Active Substance: EXEMESTANE
     Indication: BREAST CANCER METASTATIC
     Dosage: UNK
     Route: 042
     Dates: start: 2009
  4. LADOSE [Concomitant]
     Active Substance: FLUOXETINE HYDROCHLORIDE
  5. EVEROLIMUS [Concomitant]
     Active Substance: EVEROLIMUS
     Indication: BREAST CANCER METASTATIC
     Route: 065
  6. TAVOR [Concomitant]
     Active Substance: LORAZEPAM
  7. XGEVA [Suspect]
     Active Substance: DENOSUMAB
     Indication: BREAST CANCER METASTATIC
     Dosage: UNK UNK, QMO
     Route: 058
  8. LYRICA [Concomitant]
     Active Substance: PREGABALIN
  9. GLUCOPHAGE [Concomitant]
     Active Substance: METFORMIN HYDROCHLORIDE

REACTIONS (6)
  - Breast cancer metastatic [Unknown]
  - Disease progression [Unknown]
  - Blood glucose abnormal [Unknown]
  - Bone lesion [Unknown]
  - Pulmonary mass [Unknown]
  - Tumour marker increased [Unknown]
